FAERS Safety Report 8963706 (Version 1)
Quarter: 2012Q4

REPORT INFORMATION
  Report Type: Report from Study
  Country: US (occurrence: US)
  Receive Date: 20121213
  Receipt Date: 20121213
  Transmission Date: 20130627
  Serious: Yes (Other)
  Sender: FDA-Public Use
  Company Number: US-ABBOTT-12P-163-1017255-00

PATIENT
  Sex: Female
  Weight: 59.02 kg

DRUGS (4)
  1. NIASPAN (COATED) [Suspect]
     Indication: HIGH DENSITY LIPOPROTEIN DECREASED
     Dosage: At bedtime
     Dates: start: 2010, end: 201110
  2. NIASPAN (COATED) [Suspect]
     Indication: LOW DENSITY LIPOPROTEIN INCREASED
     Dosage: At bedtime
     Dates: start: 20121126
  3. POTASSIUM [Concomitant]
     Indication: PRODUCT USED FOR UNKNOWN INDICATION
  4. VITAMINS [Concomitant]
     Indication: PRODUCT USED FOR UNKNOWN INDICATION

REACTIONS (6)
  - Hepatic cirrhosis [Unknown]
  - Platelet count decreased [Unknown]
  - Pruritus [Unknown]
  - Erythema [Unknown]
  - Feeling hot [Unknown]
  - Hypertension [Unknown]
